FAERS Safety Report 8664152 (Version 10)
Quarter: 2014Q1

REPORT INFORMATION
  Report Type: Report from Study
  Country: GB (occurrence: GB)
  Receive Date: 20120713
  Receipt Date: 20140315
  Transmission Date: 20141002
  Serious: Yes (Hospitalization, Other)
  Sender: FDA-Public Use
  Company Number: GB-ROCHE-1083540

PATIENT
  Age: 82 Year
  Sex: Female
  Weight: 41.9 kg

DRUGS (27)
  1. RITUXIMAB [Suspect]
     Indication: NON-HODGKIN^S LYMPHOMA UNSPECIFIED HISTOLOGY INDOLENT
     Route: 042
     Dates: start: 20120321
  2. RHUPH20/RITUXIMAB [Suspect]
     Indication: NON-HODGKIN^S LYMPHOMA UNSPECIFIED HISTOLOGY INDOLENT
     Route: 058
     Dates: start: 20120419, end: 20130211
  3. RHUPH20/RITUXIMAB [Suspect]
     Dosage: LAST DOSE PRIOR TO SAES ON 14/FEB/2013
     Route: 058
     Dates: start: 20130423
  4. CHLORAMBUCIL [Suspect]
     Indication: NON-HODGKIN^S LYMPHOMA UNSPECIFIED HISTOLOGY INDOLENT
     Dosage: LAST DOSE PRIOR TO SAE ON 27/MAR/2012
     Route: 048
     Dates: start: 20120321
  5. SERTRALINE [Concomitant]
     Indication: ANXIETY
     Route: 065
     Dates: start: 201206
  6. ASPIRIN [Concomitant]
     Indication: HYPERTENSION
  7. LATANOPROST [Concomitant]
  8. PARACETAMOL [Concomitant]
     Indication: VIRAL INFECTION
     Route: 065
     Dates: start: 20130228, end: 20130311
  9. PARACETAMOL [Concomitant]
     Route: 065
     Dates: start: 20130522, end: 20130522
  10. PARACETAMOL [Concomitant]
     Route: 065
     Dates: start: 20130523, end: 20130604
  11. PARACETAMOL [Concomitant]
     Route: 065
     Dates: start: 20130604
  12. LAMOTRIGINE [Concomitant]
     Indication: CONVULSION
     Route: 065
     Dates: start: 20080328
  13. DORZOLAMIDE HYDROCHLORIDE [Concomitant]
     Indication: PROPHYLAXIS
     Dosage: 1 DROP
     Route: 065
  14. SANDO-K [Concomitant]
     Indication: HYPOKALAEMIA
     Route: 065
     Dates: start: 20130228, end: 20130305
  15. CHLORHEXIDINE [Concomitant]
     Indication: PROPHYLAXIS
     Dosage: BODY WASH 4%
     Route: 061
     Dates: start: 20130228, end: 20130307
  16. BACTROBAN NASAL [Concomitant]
     Indication: PROPHYLAXIS
     Route: 061
     Dates: start: 20130228, end: 20130308
  17. LATANOPROST EYE DROPS [Concomitant]
     Dosage: 1 DROP
     Route: 065
  18. TIMOLOL [Concomitant]
     Dosage: 1 DROP; 0.5% EYE DROP
     Route: 065
  19. BUPRENORPHINE [Concomitant]
     Route: 065
     Dates: start: 20130530, end: 20130602
  20. BUPRENORPHINE [Concomitant]
     Route: 065
     Dates: start: 20130603, end: 20130606
  21. BUPRENORPHINE [Concomitant]
     Route: 065
     Dates: start: 20130607, end: 20130609
  22. BUPRENORPHINE [Concomitant]
     Route: 065
     Dates: start: 20130610, end: 20130619
  23. BUPRENORPHINE [Concomitant]
     Route: 065
     Dates: start: 20130620, end: 20130719
  24. CODEINE PHOSPHATE [Concomitant]
     Route: 065
     Dates: start: 20130524, end: 20130530
  25. CHLORAMBUCIL [Concomitant]
     Indication: PREMEDICATION
     Route: 065
     Dates: start: 20120319, end: 20130930
  26. METOCLOPRAMIDE [Concomitant]
     Indication: PREMEDICATION
     Route: 065
     Dates: start: 20120319, end: 20130930
  27. ALLOPURINOL [Concomitant]
     Indication: PREMEDICATION
     Route: 065
     Dates: start: 20120319, end: 20130930

REACTIONS (2)
  - Injection site reaction [Recovered/Resolved]
  - Urinary tract infection [Not Recovered/Not Resolved]
